FAERS Safety Report 21699928 (Version 3)
Quarter: 2022Q4

REPORT INFORMATION
  Report Type: Spontaneous
  Country: US (occurrence: US)
  Receive Date: 20221208
  Receipt Date: 20221222
  Transmission Date: 20230113
  Serious: Yes (Other)
  Sender: FDA-Public Use
  Company Number: US-GE HEALTHCARE-2022CSU008685

PATIENT
  Sex: Male

DRUGS (5)
  1. OMNIPAQUE [Suspect]
     Active Substance: IOHEXOL
     Indication: Renal function test
     Dosage: UNK UNK, SINGLE
     Route: 065
     Dates: start: 20221018, end: 20221018
  2. OMNIPAQUE [Suspect]
     Active Substance: IOHEXOL
     Indication: Type 2 diabetes mellitus
  3. DEXTRAN [Suspect]
     Active Substance: DEXTRAN
     Indication: Renal function test
     Dosage: UNK
     Route: 065
     Dates: start: 20221018, end: 20221018
  4. AMINOHIPPURIC ACID [Concomitant]
     Active Substance: AMINOHIPPURIC ACID
     Indication: Renal function test
     Dosage: UNK
     Dates: start: 20221018, end: 20221018
  5. SODIUM CHLORIDE [Concomitant]
     Active Substance: SODIUM CHLORIDE
     Indication: Catheter management
     Dosage: UNK
     Dates: start: 20221018, end: 20221018

REACTIONS (1)
  - Anaphylactic reaction [Recovered/Resolved]

NARRATIVE: CASE EVENT DATE: 20221018
